FAERS Safety Report 6821984-8 (Version None)
Quarter: 2010Q3

REPORT INFORMATION
  Report Type: 
  Country: None (occurrence: None)
  Receive Date: 20100707
  Receipt Date: 20100707
  Transmission Date: 20110219
  Serious: Yes (Hospitalization)
  Sender: FDA-Public Use
  Company Number: None

PATIENT
  Sex: Female
  Weight: 80.2 kg

DRUGS (2)
  1. ABRAXANE [Suspect]
     Indication: DEHYDRATION
  2. CARBOPLATIN [Suspect]

REACTIONS (8)
  - ASTHENIA [None]
  - DECREASED APPETITE [None]
  - DEHYDRATION [None]
  - DIZZINESS [None]
  - HYPERHIDROSIS [None]
  - HYPOPHAGIA [None]
  - NAUSEA [None]
  - PRESYNCOPE [None]
